FAERS Safety Report 8982508 (Version 1)
Quarter: 2012Q4

REPORT INFORMATION
  Report Type: 
  Country: US (occurrence: US)
  Receive Date: 20121212
  Receipt Date: 20121212
  Transmission Date: 20130627
  Serious: Yes (Hospitalization, Other)
  Sender: FDA-Public Use
  Company Number: US-ASTELLAS-1107577

PATIENT
  Sex: Female

DRUGS (6)
  1. TARCEVA [Suspect]
     Indication: COLON CANCER
     Route: 065
  2. AVASTIN [Concomitant]
     Route: 065
     Dates: start: 20060922
  3. FOLINIC ACID [Concomitant]
     Route: 065
     Dates: start: 20060922
  4. FLUOROURACIL [Concomitant]
     Route: 065
     Dates: start: 20060922
  5. OXALIPLATIN [Concomitant]
     Route: 065
     Dates: start: 20060922
  6. FENTANYL PATCH [Concomitant]

REACTIONS (5)
  - Colitis [Unknown]
  - Large intestine perforation [Unknown]
  - Skin lesion [Unknown]
  - Asthenia [Unknown]
  - Metastasis [Unknown]
